FAERS Safety Report 7903158-2 (Version None)
Quarter: 2011Q4

REPORT INFORMATION
  Report Type: 
  Country: None (occurrence: None)
  Receive Date: 20111109
  Receipt Date: 20110831
  Transmission Date: 20120403
  Serious: No
  Sender: FDA-Public Use
  Company Number: US-GLAXOSMITHKLINE-A0943227A

PATIENT
  Sex: Female

DRUGS (1)
  1. HYCAMTIN [Suspect]
     Indication: PRODUCT USED FOR UNKNOWN INDICATION
     Dosage: 1MG UNKNOWN

REACTIONS (2)
  - CONSTIPATION [None]
  - NAUSEA [None]
